FAERS Safety Report 9795249 (Version 2)
Quarter: 2014Q1

REPORT INFORMATION
  Report Type: Spontaneous
  Country: JP (occurrence: JP)
  Receive Date: 20140103
  Receipt Date: 20140103
  Transmission Date: 20141002
  Serious: Yes (Hospitalization)
  Sender: FDA-Public Use
  Company Number: JP-009507513-1312JPN005647

PATIENT
  Age: 84 Year
  Sex: Female
  Weight: 54.8 kg

DRUGS (7)
  1. PREMINENT TABLETS [Suspect]
     Indication: HYPERTENSION
     Dosage: 1 DF AFTER BREAKFAST, QD
     Route: 048
     Dates: end: 20131127
  2. DONEPEZIL HYDROCHLORIDE [Concomitant]
     Indication: DEMENTIA
     Dosage: 5 MG AFTER THE BREAKFAST, QD
     Route: 048
  3. URIC [Concomitant]
     Indication: HYPERURICAEMIA
     Dosage: 100 MG AFTER THE BREAKFAST, QD
     Route: 048
  4. REBAMIPIDE [Concomitant]
     Indication: GASTRITIS
     Dosage: 100 MG AFTER THE MEAL IN THE MORNING AND EVENING, BID
     Route: 048
  5. YOKU-KAN-SAN [Concomitant]
     Indication: DEMENTIA
     Dosage: 2.5 G AFTER THE MEAL IN THE MORNING AND EVENING, BID
     Route: 048
  6. RHEUMATREX [Concomitant]
     Indication: RHEUMATIC DISORDER
     Dosage: 2 MG, BID - AFTER THE MEAL IN THE MORNING AND EVENING
     Route: 048
  7. FOLIAMIN [Concomitant]
     Indication: PROPHYLAXIS
     Dosage: 5 MG AFTER THE DINNER, QD
     Route: 048

REACTIONS (1)
  - Hypoglycaemia [Recovered/Resolved]
